FAERS Safety Report 24952710 (Version 1)
Quarter: 2025Q1

REPORT INFORMATION
  Report Type: Spontaneous
  Country: US (occurrence: US)
  Receive Date: 20250211
  Receipt Date: 20250211
  Transmission Date: 20250409
  Serious: Yes (Other)
  Sender: AUROBINDO
  Company Number: US-AUROBINDO-AUR-APL-2025-005764

PATIENT
  Age: 75 Year
  Sex: Male

DRUGS (8)
  1. ERLOTINIB [Suspect]
     Active Substance: ERLOTINIB
     Indication: Keratoacanthoma
     Route: 065
  2. TRIAMCINOLONE ACETONIDE [Suspect]
     Active Substance: TRIAMCINOLONE ACETONIDE
     Indication: Keratoacanthoma
     Route: 065
  3. FLUOROURACIL [Suspect]
     Active Substance: FLUOROURACIL
     Indication: Keratoacanthoma
     Route: 065
  4. ACITRETIN [Concomitant]
     Active Substance: ACITRETIN
     Indication: Keratoacanthoma
     Route: 048
  5. ACITRETIN [Concomitant]
     Active Substance: ACITRETIN
     Route: 048
  6. ACITRETIN [Concomitant]
     Active Substance: ACITRETIN
     Route: 048
  7. CEMIPLIMAB [Concomitant]
     Active Substance: CEMIPLIMAB
     Indication: Keratoacanthoma
     Route: 065
  8. PREDNISONE [Concomitant]
     Active Substance: PREDNISONE
     Indication: Keratoacanthoma
     Route: 065

REACTIONS (2)
  - Drug ineffective [Unknown]
  - Dermatitis acneiform [Recovered/Resolved]
